FAERS Safety Report 11748164 (Version 1)
Quarter: 2015Q4

REPORT INFORMATION
  Report Type: Spontaneous
  Country: GB (occurrence: GB)
  Receive Date: 20151117
  Receipt Date: 20151117
  Transmission Date: 20160304
  Serious: Yes (Other)
  Sender: FDA-Public Use
  Company Number: PHHY2015GB144772

PATIENT
  Age: 50 Year
  Sex: Female
  Weight: 54.88 kg

DRUGS (2)
  1. SERTRALINE [Suspect]
     Active Substance: SERTRALINE HYDROCHLORIDE
     Indication: PRODUCT USED FOR UNKNOWN INDICATION
     Route: 065
     Dates: end: 201508
  2. FLUOXETINE [Suspect]
     Active Substance: FLUOXETINE HYDROCHLORIDE
     Indication: ANXIETY
     Dosage: REDUCING DOSE TO EVERY OTHER DAY
     Route: 048
     Dates: start: 201508, end: 201510

REACTIONS (1)
  - Tinnitus [Not Recovered/Not Resolved]
